FAERS Safety Report 5830921-4 (Version None)
Quarter: 2008Q3

REPORT INFORMATION
  Report Type: 
  Country: None (occurrence: None)
  Receive Date: 20080801
  Receipt Date: 20080204
  Transmission Date: 20090109
  Serious: No
  Sender: FDA-Public Use
  Company Number: US-BRISTOL-MYERS SQUIBB COMPANY-14063655

PATIENT
  Sex: Male

DRUGS (2)
  1. COUMADIN [Suspect]
     Route: 048
  2. XALATAN [Suspect]
     Route: 047

REACTIONS (1)
  - DIPLOPIA [None]
